FAERS Safety Report 18821700 (Version 7)
Quarter: 2021Q4

REPORT INFORMATION
  Report Type: Report from Study
  Country: CN (occurrence: CN)
  Receive Date: 20210202
  Receipt Date: 20211130
  Transmission Date: 20220304
  Serious: Yes (Death, Life-Threatening, Hospitalization, Other)
  Sender: FDA-Public Use
  Company Number: CN-BAYER-2021-048317

PATIENT
  Age: 71 Year
  Sex: Male
  Weight: 69 kg

DRUGS (5)
  1. NEXAVAR [Suspect]
     Active Substance: SORAFENIB
     Indication: Hepatocellular carcinoma
     Dosage: 400 MG, BID
     Route: 048
     Dates: start: 20200707, end: 20200804
  2. NEXAVAR [Suspect]
     Active Substance: SORAFENIB
     Indication: Hepatocellular carcinoma
     Dosage: 400 MG, QD
     Route: 048
     Dates: start: 20200805, end: 20200819
  3. NEXAVAR [Suspect]
     Active Substance: SORAFENIB
     Indication: Hepatocellular carcinoma
     Dosage: 400 MG, QOD
     Route: 048
     Dates: start: 20200820, end: 20210121
  4. APATINIB [Concomitant]
     Active Substance: APATINIB
     Indication: Hepatocellular carcinoma
     Dosage: UNK
     Dates: start: 2020
  5. ALBUMIN (HUMAN) [Concomitant]
     Active Substance: ALBUMIN HUMAN
     Indication: Hypoproteinaemia

REACTIONS (10)
  - Haemorrhage intracranial [Fatal]
  - Haemorrhagic stroke [Fatal]
  - Brain herniation [None]
  - Bronchial obstruction [None]
  - Metastases to lung [None]
  - Hepatocellular carcinoma [None]
  - Blood pressure increased [None]
  - Gastrointestinal haemorrhage [None]
  - Atelectasis [None]
  - Pneumonitis [None]

NARRATIVE: CASE EVENT DATE: 20210101
